FAERS Safety Report 16264743 (Version 5)
Quarter: 2020Q2

REPORT INFORMATION
  Report Type: Spontaneous
  Country: US (occurrence: US)
  Receive Date: 20190502
  Receipt Date: 20200624
  Transmission Date: 20200713
  Serious: No
  Sender: FDA-Public Use
  Company Number: US-PFIZER INC-2019183449

PATIENT
  Age: 33 Year
  Sex: Female

DRUGS (3)
  1. LYRICA [Suspect]
     Active Substance: PREGABALIN
     Indication: POST CONCUSSION SYNDROME
     Dosage: 250 MG, 2X/DAY (TAKE ALONG WITH 25 MG BY MOUTH)
     Route: 048
     Dates: start: 2019
  2. VENLAFAXINE [Concomitant]
     Active Substance: VENLAFAXINE HYDROCHLORIDE
     Indication: ANTIDEPRESSANT THERAPY
     Dosage: 37.5 MG, 3X/DAY
     Route: 048
  3. LYRICA [Suspect]
     Active Substance: PREGABALIN
     Indication: SPINAL CORD INJURY
     Dosage: 225 MG, 2X/DAY
     Route: 048
     Dates: start: 201904, end: 2019

REACTIONS (3)
  - Weight decreased [Unknown]
  - Therapeutic product effect incomplete [Unknown]
  - Decreased appetite [Unknown]

NARRATIVE: CASE EVENT DATE: 2019
